FAERS Safety Report 7532782-4 (Version None)
Quarter: 2011Q2

REPORT INFORMATION
  Report Type: 
  Country: None (occurrence: None)
  Receive Date: 20110608
  Receipt Date: 20110520
  Transmission Date: 20111010
  Serious: Yes (Other)
  Sender: FDA-Public Use
  Company Number: B0721462A

PATIENT
  Sex: Female

DRUGS (3)
  1. NEUROLEPTIC [Concomitant]
     Route: 065
  2. ANTIDEPRESSANT [Concomitant]
     Route: 065
  3. REQUIP [Suspect]
     Indication: RESTLESS LEGS SYNDROME
     Route: 048
     Dates: end: 20110101

REACTIONS (4)
  - MANIA [None]
  - PATHOLOGICAL GAMBLING [None]
  - COMPULSIVE SHOPPING [None]
  - OVERDOSE [None]
